FAERS Safety Report 7439437-5 (Version None)
Quarter: 2011Q2

REPORT INFORMATION
  Report Type: 
  Country: None (occurrence: None)
  Receive Date: 20110421
  Receipt Date: 20110421
  Transmission Date: 20111010
  Serious: Yes (Life-Threatening)
  Sender: FDA-Public Use
  Company Number: None

PATIENT
  Age: 65 Year
  Sex: Male
  Weight: 63.5036 kg

DRUGS (1)
  1. REMICADE [Suspect]
     Indication: CROHN'S DISEASE
     Dosage: Q 8 WKS IV
     Route: 042

REACTIONS (4)
  - LIVER DISORDER [None]
  - CHOLESTASIS [None]
  - RECTAL CANCER [None]
  - CROHN'S DISEASE [None]
